FAERS Safety Report 5187273-5 (Version None)
Quarter: 2006Q4

REPORT INFORMATION
  Report Type: 
  Country: None (occurrence: None)
  Receive Date: 20061214
  Receipt Date: 20061201
  Transmission Date: 20070319
  Serious: Yes (Other)
  Sender: FDA-Public Use
  Company Number: 2006149444

PATIENT
  Age: 83 Year
  Sex: Female

DRUGS (12)
  1. LYRICA [Suspect]
     Indication: BONE PAIN
     Dosage: 300 MG (150 MG, 2 IN 1 D)
  2. ACETYLSALICYLATE YSINE (ACETYLSALICYLATE LYSINE) [Concomitant]
  3. VENLAFAXINE HCL [Concomitant]
  4. ESOMEPRAZOLE MAGNESIUM (ESOMEPRAZOLE MAGNESIUM) [Concomitant]
  5. FORMOTEROL FUMARATE (FORMOTEROL FUMARATE) [Concomitant]
  6. ACETAMINOPHEN [Concomitant]
  7. AMLODIPINE [Concomitant]
  8. GINKGO BILOBA (GINKGO BILOBA) [Concomitant]
  9. CLONAZEPAM [Concomitant]
  10. LATANOPROST [Concomitant]
  11. LOMEFLOXACIN HYDROCHLORIDE (LOMEFLOXACIN HYDROCHLORIDE) [Concomitant]
  12. MORPHINE SULFATE [Concomitant]

REACTIONS (2)
  - HALLUCINATION [None]
  - NIGHTMARE [None]
